FAERS Safety Report 15469382 (Version 3)
Quarter: 2019Q2

REPORT INFORMATION
  Report Type: Spontaneous
  Country: RO (occurrence: RO)
  Receive Date: 20181005
  Receipt Date: 20190530
  Transmission Date: 20190711
  Serious: Yes (Other)
  Sender: FDA-Public Use
  Company Number: RO-MYLANLABS-2018M1073293

PATIENT
  Sex: Female
  Weight: 1.49 kg

DRUGS (18)
  1. PLATELETS [Concomitant]
     Active Substance: HUMAN PLATELET, ALLOGENIC
     Indication: ESCHERICHIA SEPSIS
     Dosage: UNK
  2. AMIKACIN. [Concomitant]
     Active Substance: AMIKACIN
     Indication: SEPSIS NEONATAL
     Dosage: UNK
  3. MEROPENEM. [Suspect]
     Active Substance: MEROPENEM
     Indication: ESCHERICHIA SEPSIS
  4. PLATELETS [Concomitant]
     Active Substance: HUMAN PLATELET, ALLOGENIC
     Indication: SEPSIS NEONATAL
     Dosage: UNK
  5. ALBUMIN [Concomitant]
     Active Substance: ALBUMIN HUMAN
     Indication: SEPSIS NEONATAL
     Dosage: UNK
  6. COLISTIN [Concomitant]
     Active Substance: COLISTIN
     Indication: ESCHERICHIA SEPSIS
  7. AMIKACIN. [Concomitant]
     Active Substance: AMIKACIN
     Indication: ESCHERICHIA SEPSIS
     Dosage: UNK
  8. MEROPENEM. [Suspect]
     Active Substance: MEROPENEM
     Indication: SEPSIS NEONATAL
     Dosage: UNK
     Route: 065
  9. VANCOMYCIN [Concomitant]
     Active Substance: VANCOMYCIN
     Indication: SEPSIS NEONATAL
     Dosage: UNK
  10. VANCOMYCIN [Concomitant]
     Active Substance: VANCOMYCIN
     Indication: BACTERIAL SEPSIS
     Dosage: UNK
  11. PENTOXIFILIN [Concomitant]
     Indication: ESCHERICHIA SEPSIS
     Dosage: UNK
  12. FLUCONAZOLE. [Suspect]
     Active Substance: FLUCONAZOLE
     Indication: ESCHERICHIA SEPSIS
     Dosage: UNK
  13. PENTOXIFILIN [Concomitant]
     Indication: SEPSIS NEONATAL
     Dosage: UNK
  14. CEFTAZIDIME. [Suspect]
     Active Substance: CEFTAZIDIME
     Indication: ESCHERICHIA SEPSIS
  15. ALBUMIN [Concomitant]
     Active Substance: ALBUMIN HUMAN
     Indication: ESCHERICHIA SEPSIS
  16. FLUCONAZOLE. [Suspect]
     Active Substance: FLUCONAZOLE
     Indication: SEPSIS NEONATAL
     Dosage: UNK
     Route: 065
  17. CEFTAZIDIME. [Suspect]
     Active Substance: CEFTAZIDIME
     Indication: SEPSIS NEONATAL
     Dosage: UNK
     Route: 065
  18. COLISTIN [Concomitant]
     Active Substance: COLISTIN
     Indication: SEPSIS NEONATAL
     Dosage: UNK

REACTIONS (6)
  - Gamma-glutamyltransferase increased [Unknown]
  - Jaundice [Unknown]
  - Blood lactate dehydrogenase increased [Unknown]
  - Hepatic function abnormal [Unknown]
  - Investigation abnormal [Unknown]
  - Aspartate aminotransferase increased [Unknown]
